FAERS Safety Report 5252366-0 (Version None)
Quarter: 2007Q1

REPORT INFORMATION
  Report Type: 
  Country: None (occurrence: None)
  Receive Date: 20070301
  Receipt Date: 20060811
  Transmission Date: 20070707
  Serious: No
  Sender: FDA-Public Use
  Company Number: US-BRISTOL-MYERS SQUIBB COMPANY-13473111

PATIENT
  Age: 5 Decade
  Sex: Female
  Weight: 74 kg

DRUGS (1)
  1. TAXOL [Suspect]
     Indication: BREAST CANCER
     Route: 042
     Dates: start: 20060602, end: 20060602

REACTIONS (1)
  - EJECTION FRACTION DECREASED [None]
